FAERS Safety Report 7973690-4 (Version None)
Quarter: 2011Q4

REPORT INFORMATION
  Report Type: 
  Country: None (occurrence: None)
  Receive Date: 20111213
  Receipt Date: 20111209
  Transmission Date: 20120403
  Serious: Yes (Hospitalization)
  Sender: FDA-Public Use
  Company Number: CA-ROCHE-803438

PATIENT
  Sex: Female
  Weight: 59 kg

DRUGS (11)
  1. NORVASC [Concomitant]
  2. ACTEMRA [Suspect]
     Route: 042
     Dates: start: 20110812, end: 20110901
  3. ACTEMRA [Suspect]
     Route: 042
  4. ARAVA [Concomitant]
  5. FOLIC ACID [Concomitant]
  6. ACTEMRA [Suspect]
     Route: 042
  7. ACTEMRA [Suspect]
     Indication: RHEUMATOID ARTHRITIS
     Dosage: DOSE:8 MG/KG
     Route: 042
  8. ACTEMRA [Suspect]
     Route: 042
  9. ACTEMRA [Suspect]
     Route: 042
  10. ACTEMRA [Suspect]
     Route: 042
  11. METHOTREXATE [Concomitant]

REACTIONS (1)
  - ANKLE ARTHROPLASTY [None]
